FAERS Safety Report 16446095 (Version 3)
Quarter: 2020Q2

REPORT INFORMATION
  Report Type: Spontaneous
  Country: ES (occurrence: ES)
  Receive Date: 20190618
  Receipt Date: 20200401
  Transmission Date: 20200713
  Serious: Yes (Other)
  Sender: FDA-Public Use
  Company Number: ES-ALLERGAN-1925079US

PATIENT
  Sex: Female

DRUGS (3)
  1. TRIPTORELIN PAMOATE - BP [Suspect]
     Active Substance: TRIPTORELIN PAMOATE
     Indication: IN VITRO FERTILISATION
     Dosage: UNK
     Route: 065
  2. MENOTROPIN [Suspect]
     Active Substance: MENOTROPINS
     Indication: IN VITRO FERTILISATION
     Dosage: UNK
     Route: 065
  3. FOLLITROPIN ALFA [Suspect]
     Active Substance: FOLLITROPIN
     Indication: IN VITRO FERTILISATION
     Dosage: UNK
     Route: 065

REACTIONS (2)
  - Choroidal neovascularisation [Recovered/Resolved]
  - Off label use [Unknown]
